FAERS Safety Report 6261560-1 (Version None)
Quarter: 2009Q3

REPORT INFORMATION
  Report Type: 
  Country: None (occurrence: None)
  Receive Date: 20090709
  Receipt Date: 20090630
  Transmission Date: 20100115
  Serious: Yes (Hospitalization, Disabling, Other)
  Sender: FDA-Public Use
  Company Number: PHHY2009AU23932

PATIENT
  Sex: Female

DRUGS (6)
  1. TASIGNA [Suspect]
     Indication: CHRONIC MYELOID LEUKAEMIA
     Dosage: 400MG DAILY
     Dates: start: 20060701, end: 20090307
  2. WARFARIN SODIUM [Concomitant]
     Dosage: 5MG DAILY
     Dates: start: 20090304
  3. ACIMAX [Concomitant]
     Dosage: 20MG DAILY
  4. METOPROLOL [Concomitant]
  5. ATACAND [Concomitant]
     Dosage: 8MG DAILY
  6. ZANIDIP [Concomitant]
     Dosage: 10MG DAILY

REACTIONS (8)
  - ATRIAL FIBRILLATION [None]
  - C-REACTIVE PROTEIN INCREASED [None]
  - CARDIAC FAILURE CONGESTIVE [None]
  - DYSPNOEA EXERTIONAL [None]
  - HYPOCHLORAEMIA [None]
  - HYPONATRAEMIA [None]
  - INAPPROPRIATE ANTIDIURETIC HORMONE SECRETION [None]
  - PNEUMONIA [None]
